FAERS Safety Report 19035797 (Version 1)
Quarter: 2021Q1

REPORT INFORMATION
  Report Type: Spontaneous
  Country: NL (occurrence: NL)
  Receive Date: 20210321
  Receipt Date: 20210321
  Transmission Date: 20210420
  Serious: Yes (Other)
  Sender: FDA-Public Use
  Company Number: NL-TEVA-2021-NL-1891339

PATIENT
  Age: 33 Year
  Sex: Female

DRUGS (6)
  1. METOPROLOL TABLET MGA  50MG (SUCCINAAT) / BRAND NAME NOT SPECIFIED [Concomitant]
     Active Substance: METOPROLOL SUCCINATE
     Dosage: 50 MG (MILLIGRAMS); THERAPY START DATE; THERAPY END DATE : ASKED BUT UNKNOWN
  2. COLECALCIFEROL CAPSULE   5600IE / BRAND NAME NOT SPECIFIED [Concomitant]
     Active Substance: CHOLECALCIFEROL
     Dosage: 5600 UNITS; THERAPY START DATE; THERAPY END DATE : ASKED BUT UNKNOWN
  3. BUPROPION TABLET MGA 300MG / WELLBUTRIN XR TABLET MGA 300MG [Concomitant]
     Dosage: 300 MG (MILLIGRAM); THERAPY START DATE; THERAPY END DATE : ASKED BUT UNKNOWN
  4. QUETIAPINE TABLET FO  25MG / BRAND NAME NOT SPECIFIED [Suspect]
     Active Substance: QUETIAPINE
     Indication: SLEEP DISORDER
     Dosage: 25 MILLIGRAM DAILY;
     Dates: start: 202101, end: 20210218
  5. FLUTICASON?PROPIONAAT NEUSSPRAY 50UG/DO / FLIXONASE NEUSSPRAY 50MCG/DO [Concomitant]
     Dosage: 50 UG / DOSE; THERAPY START DATE; THERAPY END DATE : ASKED BUT UNKNOWN
  6. ETHINYLESTRADIOL/LEVONORGESTREL TABLET 30/150UG / BRAND NAME NOT SPECI [Concomitant]
     Active Substance: ETHINYL ESTRADIOL\LEVONORGESTREL
     Dosage: 30/150 UG (MICROGRAMS); THERAPY START DATE; THERAPY END DATE : ASKED BUT UNKNOWN

REACTIONS (1)
  - Deep vein thrombosis [Not Recovered/Not Resolved]

NARRATIVE: CASE EVENT DATE: 20210214
